FAERS Safety Report 20916761 (Version 1)
Quarter: 2022Q2

REPORT INFORMATION
  Report Type: Spontaneous
  Country: JP (occurrence: JP)
  Receive Date: 20220605
  Receipt Date: 20220605
  Transmission Date: 20220720
  Serious: Yes (Other)
  Sender: FDA-Public Use
  Company Number: JP-NOVARTISPH-NVSC2022JP128124

PATIENT
  Age: 59 Year
  Sex: Male

DRUGS (1)
  1. CYCLOSPORINE [Suspect]
     Active Substance: CYCLOSPORINE
     Indication: Granulomatous T-cell pseudolymphoma
     Dosage: 3 MG/KG, QD
     Route: 048

REACTIONS (2)
  - Diffuse large B-cell lymphoma [Recovering/Resolving]
  - Product use in unapproved indication [Unknown]
